FAERS Safety Report 23622741 (Version 1)
Quarter: 2024Q1

REPORT INFORMATION
  Report Type: Spontaneous
  Country: US (occurrence: US)
  Receive Date: 20240312
  Receipt Date: 20240312
  Transmission Date: 20240410
  Serious: No
  Sender: FDA-Public Use
  Company Number: US-SANDOZ-SDZ2024US026266

PATIENT
  Sex: Female

DRUGS (1)
  1. ALBUTEROL SULFATE [Suspect]
     Active Substance: ALBUTEROL SULFATE
     Indication: Wheezing
     Dosage: INHALE TWO PUFFS EVERY 4 HOURS AS NEEDED.
     Route: 055

REACTIONS (3)
  - Product use in unapproved indication [Unknown]
  - Device mechanical issue [Unknown]
  - Device difficult to use [Unknown]
